FAERS Safety Report 22290248 (Version 1)
Quarter: 2023Q2

REPORT INFORMATION
  Report Type: Spontaneous
  Country: US (occurrence: US)
  Receive Date: 20230505
  Receipt Date: 20230505
  Transmission Date: 20230722
  Serious: No
  Sender: FDA-Public Use
  Company Number: US-BRISTOL-MYERS SQUIBB COMPANY-2023-064547

PATIENT
  Age: 79 Year
  Sex: Male
  Weight: 66.2 kg

DRUGS (1)
  1. POMALYST [Suspect]
     Active Substance: POMALIDOMIDE
     Indication: Plasma cell myeloma
     Dosage: FREQ: DAILY M-F FOR 3 WEEKS, THEN 1 WEEK OFF
     Route: 048
     Dates: start: 20221003

REACTIONS (1)
  - Protein total increased [Unknown]
